FAERS Safety Report 7560723-2 (Version None)
Quarter: 2011Q2

REPORT INFORMATION
  Report Type: 
  Country: None (occurrence: None)
  Receive Date: 20110621
  Receipt Date: 20110606
  Transmission Date: 20111010
  Serious: Yes (Hospitalization)
  Sender: FDA-Public Use
  Company Number: HR-WATSON-2011-08224

PATIENT
  Age: 62 Year
  Sex: Male

DRUGS (2)
  1. AZITHROMYCIN [Suspect]
     Indication: UPPER RESPIRATORY TRACT INFECTION
     Dosage: UNK
  2. TACROLIMUS [Suspect]
     Indication: HEPATIC ENZYME INCREASED
     Dosage: UNK

REACTIONS (3)
  - VANISHING BILE DUCT SYNDROME [None]
  - STEVENS-JOHNSON SYNDROME [None]
  - HEPATIC ENZYME INCREASED [None]
